FAERS Safety Report 5904470-9 (Version None)
Quarter: 2008Q3

REPORT INFORMATION
  Report Type: 
  Country: None (occurrence: None)
  Receive Date: 20080909
  Receipt Date: 20071218
  Transmission Date: 20090109
  Serious: Yes (Hospitalization)
  Sender: FDA-Public Use
  Company Number: 163-20785-07111093

PATIENT
  Age: 64 Year
  Sex: Female
  Weight: 51.7 kg

DRUGS (1)
  1. THALOMID [Suspect]
     Indication: OVARIAN EPITHELIAL CANCER
     Dosage: 200MG-400MG, QHS, DOSE INCREASE 100MG QWEEK MAX 400MG, ORAL
     Route: 048
     Dates: start: 20070518, end: 20071113

REACTIONS (1)
  - ILEUS [None]
